FAERS Safety Report 10430770 (Version 1)
Quarter: 2014Q3

REPORT INFORMATION
  Report Type: Spontaneous
  Country: US (occurrence: None)
  Receive Date: 20140903
  Receipt Date: 20140903
  Transmission Date: 20150326
  Serious: Yes (Other)
  Sender: FDA-Public Use
  Company Number: None

PATIENT
  Age: 79 Year
  Sex: Male
  Weight: 82.3 kg

DRUGS (1)
  1. LEUPROLIDE [Suspect]
     Active Substance: LEUPROLIDE
     Indication: PROSTATE CANCER
     Dosage: 22.5 MG ONCE SQ
     Route: 058
     Dates: start: 20140523, end: 20140523

REACTIONS (5)
  - Hypotension [None]
  - Unresponsive to stimuli [None]
  - Dizziness [None]
  - Bradycardia [None]
  - Dysarthria [None]

NARRATIVE: CASE EVENT DATE: 20140523
